FAERS Safety Report 22056956 (Version 1)
Quarter: 2023Q1

REPORT INFORMATION
  Report Type: Other
  Country: MA (occurrence: MA)
  Receive Date: 20230303
  Receipt Date: 20230303
  Transmission Date: 20230417
  Serious: Yes (Life-Threatening)
  Sender: FDA-Public Use
  Company Number: MA-Bion-011276

PATIENT
  Age: 38 Year
  Sex: Female

DRUGS (1)
  1. PROGESTERONE [Suspect]
     Active Substance: PROGESTERONE
     Indication: Prophylaxis of abortion
     Route: 067

REACTIONS (2)
  - Drug ineffective [Not Recovered/Not Resolved]
  - Exposure during pregnancy [Unknown]
